FAERS Safety Report 8958436 (Version 1)
Quarter: 2012Q4

REPORT INFORMATION
  Report Type: Spontaneous
  Country: US (occurrence: None)
  Receive Date: 20121205
  Receipt Date: 20121205
  Transmission Date: 20130627
  Serious: Yes (Hospitalization)
  Sender: FDA-Public Use
  Company Number: None

PATIENT
  Age: 15 Year
  Sex: Female
  Weight: 47.17 kg

DRUGS (1)
  1. DIPHENHYDRAMINE [Suspect]

REACTIONS (4)
  - Self-medication [None]
  - Grand mal convulsion [None]
  - Drooling [None]
  - Postictal state [None]
